FAERS Safety Report 7546473-7 (Version None)
Quarter: 2011Q2

REPORT INFORMATION
  Report Type: 
  Country: None (occurrence: None)
  Receive Date: 20110614
  Receipt Date: 20110608
  Transmission Date: 20111010
  Serious: Yes (Life-Threatening)
  Sender: FDA-Public Use
  Company Number: CN-CTI_01365_2011

PATIENT
  Age: 24 Hour
  Sex: Male

DRUGS (1)
  1. CUROSURF [Suspect]
     Indication: NEONATAL RESPIRATORY DISTRESS SYNDROME
     Dosage: DF
     Route: 007

REACTIONS (6)
  - RESPIRATORY ARREST [None]
  - HYPOTONIA [None]
  - ANAPHYLACTIC SHOCK [None]
  - PALLOR [None]
  - CARDIAC ARREST [None]
  - BLOOD PRESSURE IMMEASURABLE [None]
